FAERS Safety Report 6431244-5 (Version None)
Quarter: 2009Q4

REPORT INFORMATION
  Report Type: 
  Country: None (occurrence: None)
  Receive Date: 20091106
  Receipt Date: 20091029
  Transmission Date: 20100525
  Serious: Yes (Hospitalization)
  Sender: FDA-Public Use
  Company Number: IT-ABBOTT-09P-083-0597196-00

PATIENT
  Sex: Female

DRUGS (3)
  1. ECTIVA [Suspect]
     Indication: OBESITY
     Dates: start: 20090608, end: 20090730
  2. NAEMIS [Suspect]
     Indication: HORMONE REPLACEMENT THERAPY
     Dates: start: 20080801, end: 20090730
  3. KARVEZIDE [Concomitant]
     Indication: HYPERTENSION
     Dosage: 300/12.5 DOSAGE AT DISCHARGE

REACTIONS (3)
  - FACIAL PALSY [None]
  - PARAESTHESIA [None]
  - TRANSIENT ISCHAEMIC ATTACK [None]
